FAERS Safety Report 15116646 (Version 1)
Quarter: 2018Q2

REPORT INFORMATION
  Report Type: Spontaneous
  Country: US (occurrence: US)
  Receive Date: 20180612
  Receipt Date: 20180612
  Transmission Date: 20180711
  Serious: Yes (Other)
  Sender: FDA-Public Use
  Company Number: None

PATIENT
  Age: 65 Year
  Sex: Female

DRUGS (1)
  1. H.P. ACTHAR [Suspect]
     Active Substance: CORTICOTROPIN
     Route: 058

REACTIONS (3)
  - Vulvovaginal pain [None]
  - Vulvovaginal erythema [None]
  - Vulvovaginal swelling [None]

NARRATIVE: CASE EVENT DATE: 20180612
